FAERS Safety Report 5707445-8 (Version None)
Quarter: 2008Q2

REPORT INFORMATION
  Report Type: 
  Country: None (occurrence: None)
  Receive Date: 20080416
  Receipt Date: 20080401
  Transmission Date: 20081010
  Serious: Yes (Hospitalization)
  Sender: FDA-Public Use
  Company Number: IE-GENENTECH-259064

PATIENT
  Sex: Female
  Weight: 53.4 kg

DRUGS (5)
  1. AVASTIN [Suspect]
     Indication: BREAST CANCER METASTATIC
     Dosage: 10 MG/KG, UNK
     Route: 042
     Dates: start: 20080104, end: 20080131
  2. PACLITAXEL [Concomitant]
     Indication: BREAST CANCER METASTATIC
     Dates: start: 20080104
  3. EPROSARTAN MESYLATE [Concomitant]
     Indication: BREAST CANCER METASTATIC
  4. ONDANSETRON HCL [Concomitant]
     Indication: BREAST CANCER METASTATIC
     Dates: start: 20080107
  5. DEXAMETHASONE TAB [Concomitant]
     Indication: BREAST CANCER METASTATIC
     Dates: start: 20080107

REACTIONS (1)
  - OESOPHAGEAL ULCER [None]
